FAERS Safety Report 14917401 (Version 1)
Quarter: 2018Q2

REPORT INFORMATION
  Report Type: Spontaneous
  Country: SE (occurrence: SE)
  Receive Date: 20180521
  Receipt Date: 20180521
  Transmission Date: 20180711
  Serious: Yes (Hospitalization)
  Sender: FDA-Public Use
  Company Number: SE-SUN PHARMACEUTICAL INDUSTRIES LTD-2018R1-173259

PATIENT
  Age: 75 Year
  Sex: Male

DRUGS (1)
  1. ESOMEPRAZOLE [Suspect]
     Active Substance: ESOMEPRAZOLE
     Indication: PRODUCT USED FOR UNKNOWN INDICATION
     Dosage: UNK
     Route: 065
     Dates: end: 20180225

REACTIONS (2)
  - Hypocalcaemia [Recovering/Resolving]
  - Electrolyte imbalance [Recovering/Resolving]

NARRATIVE: CASE EVENT DATE: 20180225
